FAERS Safety Report 24729853 (Version 3)
Quarter: 2025Q1

REPORT INFORMATION
  Report Type: Report from Study
  Country: JP (occurrence: JP)
  Receive Date: 20241213
  Receipt Date: 20250122
  Transmission Date: 20250408
  Serious: Yes (Life-Threatening, Other)
  Sender: BOEHRINGER INGELHEIM
  Company Number: JP-NBI-2024-BI-067756

PATIENT
  Age: 55 Year
  Sex: Female
  Weight: 76 kg

DRUGS (3)
  1. SPEVIGO [Suspect]
     Active Substance: SPESOLIMAB-SBZO
     Indication: Pustular psoriasis
     Dates: start: 20240619, end: 20240619
  2. MYSER [Concomitant]
     Indication: Pustular psoriasis
  3. METHOTREXATE [Concomitant]
     Active Substance: METHOTREXATE
     Indication: Pustular psoriasis

REACTIONS (2)
  - Duodenal ulcer haemorrhage [Recovered/Resolved]
  - Pancreatitis acute [Recovered/Resolved]

NARRATIVE: CASE EVENT DATE: 20240622
